FAERS Safety Report 12777555 (Version 1)
Quarter: 2016Q3

REPORT INFORMATION
  Report Type: Spontaneous
  Country: US (occurrence: US)
  Receive Date: 20160924
  Receipt Date: 20160924
  Transmission Date: 20161109
  Serious: No
  Sender: FDA-Public Use
  Company Number: US-TEVA-687762USA

PATIENT
  Sex: Male
  Weight: 83.54 kg

DRUGS (2)
  1. CLONAZEPAM. [Suspect]
     Active Substance: CLONAZEPAM
     Indication: NEUROPATHY PERIPHERAL
  2. CLONAZEPAM. [Suspect]
     Active Substance: CLONAZEPAM
     Indication: ESSENTIAL TREMOR
     Route: 065
     Dates: start: 20160614

REACTIONS (2)
  - Drug effect increased [Unknown]
  - Somnolence [Unknown]
